FAERS Safety Report 25701101 (Version 1)
Quarter: 2025Q3

REPORT INFORMATION
  Report Type: Spontaneous
  Country: BR (occurrence: BR)
  Receive Date: 20250819
  Receipt Date: 20250819
  Transmission Date: 20251020
  Serious: Yes (Hospitalization)
  Sender: PUMA
  Company Number: BR-OEPI8P-1613

PATIENT

DRUGS (1)
  1. NERLYNX [Suspect]
     Active Substance: NERATINIB
     Indication: Product used for unknown indication
     Route: 065

REACTIONS (2)
  - Confusional state [Unknown]
  - Urinary tract infection [Unknown]
